FAERS Safety Report 6284374-5 (Version None)
Quarter: 2009Q3

REPORT INFORMATION
  Report Type: 
  Country: None (occurrence: None)
  Receive Date: 20090717
  Receipt Date: 20090708
  Transmission Date: 20100115
  Serious: Yes (Other)
  Sender: FDA-Public Use
  Company Number: THYM-1001101

PATIENT
  Age: 15 Year
  Sex: Male

DRUGS (6)
  1. THYMOGLOBULIN [Suspect]
     Indication: APLASTIC ANAEMIA
     Dosage: 297.5 MG, INTRAVENOUS
     Route: 042
     Dates: start: 20090622
  2. PARACETAMOL (PARACETAMOL) [Concomitant]
  3. PIRITON (CHLOPHENAMINE MALEATE) [Concomitant]
  4. PREDNISOLONE [Concomitant]
  5. ZOFRAN [Concomitant]
  6. CYCLOSPORINE [Concomitant]

REACTIONS (6)
  - CHILLS [None]
  - DYSPHAGIA [None]
  - FLUSHING [None]
  - LIP SWELLING [None]
  - PYREXIA [None]
  - VOMITING [None]
